FAERS Safety Report 21450905 (Version 1)
Quarter: 2022Q4

REPORT INFORMATION
  Report Type: Spontaneous
  Country: ES (occurrence: ES)
  Receive Date: 20221013
  Receipt Date: 20221013
  Transmission Date: 20230112
  Serious: Yes (Death, Hospitalization)
  Sender: FDA-Public Use
  Company Number: None

PATIENT
  Age: 55 Year
  Sex: Female

DRUGS (3)
  1. CLOZAPINE [Suspect]
     Active Substance: CLOZAPINE
     Indication: Schizophrenia
     Dosage: 1-2-3
     Route: 065
     Dates: start: 20101201
  2. OMEPRAZOL KERN PHARMA [Concomitant]
     Dosage: 1-0-0
     Route: 065
     Dates: start: 20140530
  3. LORAZEPAM [Concomitant]
     Active Substance: LORAZEPAM
     Dosage: 1-1-1
     Route: 065
     Dates: start: 20110506

REACTIONS (2)
  - Neutropenia [Fatal]
  - Leukopenia [Fatal]

NARRATIVE: CASE EVENT DATE: 20220318
